FAERS Safety Report 21563316 (Version 1)
Quarter: 2022Q4

REPORT INFORMATION
  Report Type: Report from Study
  Country: US (occurrence: US)
  Receive Date: 20221108
  Receipt Date: 20221108
  Transmission Date: 20230112
  Serious: Yes (Other)
  Sender: FDA-Public Use
  Company Number: US-ABBVIE-4188077

PATIENT
  Age: 65 Year
  Sex: Male
  Weight: 90.718 kg

DRUGS (8)
  1. IBRUTINIB [Suspect]
     Active Substance: IBRUTINIB
     Indication: Non-Hodgkin^s lymphoma
     Dosage: ONGOING
     Route: 048
     Dates: start: 20220920
  2. IBRUTINIB [Suspect]
     Active Substance: IBRUTINIB
     Indication: Non-Hodgkin^s lymphoma
     Dosage: DISCONTINUED
     Route: 048
     Dates: start: 201905
  3. IBRUTINIB [Suspect]
     Active Substance: IBRUTINIB
     Indication: Non-Hodgkin^s lymphoma
     Dosage: 560 MG PILL?ONGOING
     Route: 048
     Dates: start: 20160908
  4. FINASTERIDE [Concomitant]
     Active Substance: FINASTERIDE
     Indication: Product used for unknown indication
     Route: 048
     Dates: start: 201509
  5. AZITHROMYCIN [Concomitant]
     Active Substance: AZITHROMYCIN
     Indication: Product used for unknown indication
     Dosage: 250 MG PILL
     Route: 048
     Dates: start: 201510
  6. METOPROLOL [Concomitant]
     Active Substance: METOPROLOL
     Indication: Product used for unknown indication
     Route: 048
     Dates: start: 201409
  7. ACYCLOVIR [Concomitant]
     Active Substance: ACYCLOVIR
     Indication: Product used for unknown indication
     Route: 048
     Dates: start: 201409
  8. ATOVAQUONE [Concomitant]
     Active Substance: ATOVAQUONE
     Indication: Product used for unknown indication
     Dosage: 150 MG LIQ
     Dates: start: 201809

REACTIONS (5)
  - Neoplasm malignant [Unknown]
  - Bone marrow transplant [Unknown]
  - Bone marrow transplant [Unknown]
  - Non-Hodgkin^s lymphoma [Unknown]
  - Spinal column injury [Unknown]

NARRATIVE: CASE EVENT DATE: 20121001
